FAERS Safety Report 20757999 (Version 1)
Quarter: 2022Q2

REPORT INFORMATION
  Report Type: Report from Study
  Country: FR (occurrence: FR)
  Receive Date: 20220427
  Receipt Date: 20220427
  Transmission Date: 20220721
  Serious: Yes (Death, Hospitalization, Other)
  Sender: FDA-Public Use
  Company Number: FR-BRISTOL-MYERS SQUIBB COMPANY-2022-025183

PATIENT
  Age: 76 Year
  Sex: Female

DRUGS (1)
  1. NIVOLUMAB [Suspect]
     Active Substance: NIVOLUMAB
     Indication: Renal cancer
     Route: 042
     Dates: start: 20210930, end: 20220309

REACTIONS (5)
  - Pyrexia [Fatal]
  - Vomiting [Unknown]
  - Clostridium difficile colitis [Unknown]
  - Sepsis [Unknown]
  - Pain [Unknown]

NARRATIVE: CASE EVENT DATE: 20220210
